FAERS Safety Report 8760459 (Version 2)
Quarter: 2012Q4

REPORT INFORMATION
  Report Type: 
  Country: CA (occurrence: CA)
  Receive Date: 20120830
  Receipt Date: 20120920
  Transmission Date: 20130627
  Serious: Yes (Death)
  Sender: FDA-Public Use
  Company Number: PHHY2012CA074727

PATIENT
  Age: 88 Year
  Sex: Male

DRUGS (12)
  1. CLOZARIL [Suspect]
     Indication: BIPOLAR DISORDER
     Dosage: 25 mg, HS
     Route: 048
     Dates: start: 19970930
  2. TRIMETHOPRIM [Concomitant]
     Dosage: 200 mg, UNK
  3. SPIRONOLACTONE [Concomitant]
     Dosage: 25 mg, UNK
  4. ABENOL [Concomitant]
     Dosage: 650 mg, UNK
  5. LAMOTRIGINE [Concomitant]
     Dosage: 25 mg, UNK
  6. GLUCOSE [Concomitant]
     Dosage: 40 % liquid
  7. FUROSEMIDE [Concomitant]
     Dosage: 40 mg, UNK
  8. SENOKOT-S [Concomitant]
  9. ZYLOPRIM [Concomitant]
     Dosage: 100 mg, UNK
  10. DILAUDID [Concomitant]
     Dosage: 1 mg/ml
  11. LIPODERM [Concomitant]
     Dosage: 100 mg, UNK
  12. LIPODERM OMEGA [Concomitant]

REACTIONS (3)
  - Death [Fatal]
  - Cardiac disorder [Fatal]
  - Diabetes mellitus [Fatal]
